FAERS Safety Report 9681581 (Version 3)
Quarter: 2014Q1

REPORT INFORMATION
  Report Type: Spontaneous
  Country: GB (occurrence: GB)
  Receive Date: 20131111
  Receipt Date: 20140211
  Transmission Date: 20141002
  Serious: Yes (Other)
  Sender: FDA-Public Use
  Company Number: GB-PFIZER INC-2013317615

PATIENT
  Age: 49 Year
  Sex: Female

DRUGS (9)
  1. IBUPROFEN [Suspect]
     Indication: PAIN IN EXTREMITY
     Dosage: 400 MG, UNK
     Route: 048
     Dates: end: 20131029
  2. CITALOPRAM [Interacting]
     Dosage: 10 MG, UNIT DOSE
  3. DIAZEPAM [Concomitant]
     Indication: ANXIETY
  4. TEMAZEPAM [Concomitant]
     Indication: ANXIETY
  5. PARACETAMOL [Concomitant]
  6. QVAR [Concomitant]
     Indication: ASTHMA
  7. SALAMOL [Concomitant]
     Indication: ASTHMA
  8. SEREVENT [Concomitant]
     Indication: ASTHMA
  9. FEMSEVEN [Concomitant]
     Indication: HORMONE REPLACEMENT THERAPY

REACTIONS (2)
  - Drug interaction [Recovered/Resolved]
  - Rectal haemorrhage [Recovered/Resolved]
